FAERS Safety Report 6170171-8 (Version None)
Quarter: 2009Q2

REPORT INFORMATION
  Report Type: 
  Country: None (occurrence: None)
  Receive Date: 20090428
  Receipt Date: 20090416
  Transmission Date: 20091009
  Serious: Yes (Hospitalization)
  Sender: FDA-Public Use
  Company Number: AU-CELGENEUS-008-20785-09040712

PATIENT
  Sex: Male

DRUGS (8)
  1. THALIDOMIDE [Suspect]
     Indication: MULTIPLE MYELOMA
     Route: 048
     Dates: start: 20090306
  2. DIAMICRON [Concomitant]
     Indication: DIABETES MELLITUS
     Route: 065
  3. DIABOX [Concomitant]
     Indication: DIABETES MELLITUS
     Route: 065
  4. AVAPRO HCT [Concomitant]
     Indication: HYPERTENSION
     Dosage: 300/12.5
     Route: 065
  5. NEXIUM [Concomitant]
     Indication: REFLUX GASTRITIS
     Route: 065
  6. OXYCONTIN [Concomitant]
     Indication: PAIN
     Route: 065
  7. CRESTOR [Concomitant]
     Indication: HYPERCHOLESTEROLAEMIA
     Route: 065
  8. TENORMIN [Concomitant]
     Route: 065

REACTIONS (1)
  - PYODERMA GANGRENOSUM [None]
